FAERS Safety Report 16677277 (Version 1)
Quarter: 2019Q3

REPORT INFORMATION
  Report Type: Spontaneous
  Country: US (occurrence: US)
  Receive Date: 20190807
  Receipt Date: 20190807
  Transmission Date: 20191004
  Serious: Yes (Hospitalization, Other)
  Sender: FDA-Public Use
  Company Number: US-HIKMA PHARMACEUTICALS USA INC.-US-H14001-19-04475

PATIENT
  Age: 5 Decade
  Sex: Male

DRUGS (2)
  1. DISULFIRAM. [Suspect]
     Active Substance: DISULFIRAM
     Indication: BABESIOSIS
  2. DISULFIRAM. [Suspect]
     Active Substance: DISULFIRAM
     Indication: LYME DISEASE
     Route: 065
     Dates: start: 201703, end: 2017

REACTIONS (3)
  - Off label use [Recovered/Resolved]
  - Mental disorder [Recovered/Resolved]
  - Therapeutic response unexpected [Recovered/Resolved]
